FAERS Safety Report 5969888-7 (Version None)
Quarter: 2008Q4

REPORT INFORMATION
  Report Type: 
  Country: None (occurrence: None)
  Receive Date: 20081126
  Receipt Date: 20081119
  Transmission Date: 20090506
  Serious: Yes (Other)
  Sender: FDA-Public Use
  Company Number: US-GENENTECH-272278

PATIENT
  Sex: Male

DRUGS (2)
  1. AVASTIN [Suspect]
     Indication: COLON CANCER METASTATIC
  2. FLUOROURACIL [Concomitant]
     Indication: COLON CANCER METASTATIC

REACTIONS (2)
  - FLUSHING [None]
  - PARAESTHESIA ORAL [None]
